FAERS Safety Report 4661239-3 (Version None)
Quarter: 2005Q2

REPORT INFORMATION
  Report Type: 
  Country: None (occurrence: None)
  Receive Date: 20050420
  Receipt Date: 20040413
  Transmission Date: 20051028
  Serious: Yes (Other)
  Sender: FDA-Public Use
  Company Number: 200412845US

PATIENT
  Age: 35 Year
  Sex: Female

DRUGS (1)
  1. ALLEGRA [Suspect]
     Indication: HYPERSENSITIVITY
     Dosage: 180 MG QD PO
     Route: 048
     Dates: end: 20040101

REACTIONS (6)
  - CHILLS [None]
  - DYSMENORRHOEA [None]
  - INSOMNIA [None]
  - MENORRHAGIA [None]
  - TREMOR [None]
  - VOMITING [None]
